FAERS Safety Report 6159505-8 (Version None)
Quarter: 2009Q2

REPORT INFORMATION
  Report Type: 
  Country: None (occurrence: None)
  Receive Date: 20090420
  Receipt Date: 20090213
  Transmission Date: 20091009
  Serious: No
  Sender: FDA-Public Use
  Company Number: US-ABBOTT-09P-163-0557795-00

PATIENT
  Sex: Female
  Weight: 29.51 kg

DRUGS (7)
  1. LUPRON DEPOT-PED [Suspect]
     Indication: PRECOCIOUS PUBERTY
     Route: 030
     Dates: start: 20081201, end: 20090101
  2. LUPRON DEPOT-PED [Suspect]
     Route: 030
     Dates: start: 20090202
  3. NAC DIAGNOSTIC REAGENT [Concomitant]
     Indication: PRECOCIOUS PUBERTY
  4. LEUCOVORIN CALCIUM [Concomitant]
     Indication: PRECOCIOUS PUBERTY
  5. MIRALAX [Concomitant]
     Indication: LAXATIVE SUPPORTIVE CARE
  6. PRILOSEC [Concomitant]
     Indication: GASTROOESOPHAGEAL REFLUX DISEASE
  7. METHIONINE [Concomitant]
     Indication: DRUG USE FOR UNKNOWN INDICATION

REACTIONS (6)
  - ABASIA [None]
  - CRYING [None]
  - HOT FLUSH [None]
  - INJECTION SITE DISCOMFORT [None]
  - INJECTION SITE PAIN [None]
  - PAIN [None]
